FAERS Safety Report 8116999-6 (Version None)
Quarter: 2012Q1

REPORT INFORMATION
  Report Type: 
  Country: None (occurrence: None)
  Receive Date: 20120206
  Receipt Date: 20120131
  Transmission Date: 20120608
  Serious: Yes (Disabling)
  Sender: FDA-Public Use
  Company Number: PHEH2012US001149

PATIENT
  Sex: Female
  Weight: 66 kg

DRUGS (8)
  1. BACLOFEN [Concomitant]
     Route: 048
  2. TOVIAZ [Concomitant]
     Route: 048
  3. AMBIEN [Concomitant]
     Route: 048
  4. NASONEX [Concomitant]
     Route: 048
  5. ADDERALL 5 [Concomitant]
     Route: 048
  6. ALLEGRA [Concomitant]
     Route: 048
  7. GILENYA [Suspect]
     Indication: MULTIPLE SCLEROSIS
     Dosage: 0.5 MG, DAILY
     Route: 048
     Dates: start: 20111025
  8. WELLBUTRIN SR [Concomitant]
     Route: 048

REACTIONS (6)
  - VOMITING [None]
  - VERTIGO [None]
  - VISION BLURRED [None]
  - DIPLOPIA [None]
  - EYE PAIN [None]
  - NAUSEA [None]
